FAERS Safety Report 23153315 (Version 1)
Quarter: 2023Q4

REPORT INFORMATION
  Report Type: Spontaneous
  Country: US (occurrence: None)
  Receive Date: 20231106
  Receipt Date: 20231106
  Transmission Date: 20240109
  Serious: Yes (Death, Hospitalization)
  Sender: FDA-Public Use
  Company Number: None

PATIENT
  Age: 81 Year
  Sex: Female
  Weight: 54.6 kg

DRUGS (1)
  1. LACTULOSE [Suspect]
     Active Substance: LACTULOSE
     Indication: Liver injury
     Dosage: FREQUENCY : TWICE A DAY;?
     Route: 048
     Dates: start: 20230808, end: 20230916

REACTIONS (2)
  - Dehydration [None]
  - Near death experience [None]

NARRATIVE: CASE EVENT DATE: 20230915
